FAERS Safety Report 7337314-1 (Version None)
Quarter: 2011Q1

REPORT INFORMATION
  Report Type: 
  Country: None (occurrence: None)
  Receive Date: 20110308
  Receipt Date: 20110301
  Transmission Date: 20110831
  Serious: Yes (Other)
  Sender: FDA-Public Use
  Company Number: US-JNJFOC-20110203814

PATIENT
  Sex: Female
  Weight: 70.31 kg

DRUGS (1)
  1. FENTANYL-100 [Suspect]
     Indication: BACK PAIN
     Route: 062

REACTIONS (7)
  - CHILLS [None]
  - INSOMNIA [None]
  - CRYING [None]
  - DIARRHOEA [None]
  - PRODUCT QUALITY ISSUE [None]
  - DELIRIUM TREMENS [None]
  - VOMITING [None]
